FAERS Safety Report 12496655 (Version 1)
Quarter: 2016Q2

REPORT INFORMATION
  Report Type: Report from Study
  Country: US (occurrence: US)
  Receive Date: 20160624
  Receipt Date: 20160624
  Transmission Date: 20160815
  Serious: Yes (Hospitalization)
  Sender: FDA-Public Use
  Company Number: US-ACTELION-A-NJ2016-133100

PATIENT
  Age: 60 Year
  Sex: Male

DRUGS (1)
  1. OPSUMIT [Suspect]
     Active Substance: MACITENTAN
     Indication: PULMONARY HYPERTENSION
     Dosage: 10 MG, QD
     Route: 048
     Dates: start: 20160223

REACTIONS (6)
  - Hepatic artery aneurysm [Unknown]
  - Fatigue [Unknown]
  - Haematochezia [Unknown]
  - Oesophageal disorder [Unknown]
  - Exercise tolerance decreased [Unknown]
  - Medical procedure [Unknown]
